FAERS Safety Report 7198780-8 (Version None)
Quarter: 2010Q4

REPORT INFORMATION
  Report Type: 
  Country: None (occurrence: None)
  Receive Date: 20101227
  Receipt Date: 20101117
  Transmission Date: 20110411
  Serious: No
  Sender: FDA-Public Use
  Company Number: US-ABBOTT-10P-163-0686774-00

PATIENT
  Sex: Male
  Weight: 70.37 kg

DRUGS (3)
  1. LUPRON DEPOT [Suspect]
     Indication: PROSTATE CANCER
     Dates: start: 20100301, end: 20100721
  2. COUMADIN [Concomitant]
     Indication: ARRHYTHMIA PROPHYLAXIS
  3. DILTIAZEM [Concomitant]
     Indication: ARRHYTHMIA PROPHYLAXIS

REACTIONS (1)
  - WEIGHT INCREASED [None]
